FAERS Safety Report 5126711-0 (Version None)
Quarter: 2006Q4

REPORT INFORMATION
  Report Type: 
  Country: None (occurrence: None)
  Receive Date: 20061013
  Receipt Date: 20061006
  Transmission Date: 20070319
  Serious: Yes (Other)
  Sender: FDA-Public Use
  Company Number: 2006PK02016

PATIENT
  Age: 94 Year
  Sex: Female

DRUGS (7)
  1. ACEMIN [Suspect]
     Indication: HYPERTENSION
     Route: 048
     Dates: start: 20010101, end: 20060101
  2. FOSAMAX [Concomitant]
  3. MADOPAR [Concomitant]
     Dosage: 100 MG/25 MG
  4. MOXONIBENE [Concomitant]
  5. SEROPRAM [Concomitant]
  6. THROMBO ASS [Concomitant]
  7. TRITTICO RET [Concomitant]

REACTIONS (2)
  - LOCAL SWELLING [None]
  - OEDEMA MOUTH [None]
